FAERS Safety Report 25397048 (Version 1)
Quarter: 2025Q2

REPORT INFORMATION
  Report Type: Spontaneous
  Country: GB (occurrence: GB)
  Receive Date: 20250604
  Receipt Date: 20250604
  Transmission Date: 20250717
  Serious: Yes (Other)
  Sender: MYLAN
  Company Number: GB-MHRA-TPP9019429C9447906YC1748502447894

PATIENT
  Age: 56 Year
  Sex: Male
  Weight: 96 kg

DRUGS (16)
  1. SILDENAFIL [Suspect]
     Active Substance: SILDENAFIL
     Indication: Ill-defined disorder
     Dates: start: 20250513, end: 20250528
  2. SILDENAFIL [Suspect]
     Active Substance: SILDENAFIL
     Route: 048
     Dates: start: 20250513, end: 20250528
  3. SILDENAFIL [Suspect]
     Active Substance: SILDENAFIL
     Route: 048
     Dates: start: 20250513, end: 20250528
  4. SILDENAFIL [Suspect]
     Active Substance: SILDENAFIL
     Dates: start: 20250513, end: 20250528
  5. TAMSULOSIN HYDROCHLORIDE [Concomitant]
     Active Substance: TAMSULOSIN HYDROCHLORIDE
     Indication: Ill-defined disorder
     Dosage: 1 DOSAGE FORM, QD
     Dates: start: 20250114, end: 20250513
  6. TAMSULOSIN HYDROCHLORIDE [Concomitant]
     Active Substance: TAMSULOSIN HYDROCHLORIDE
     Dosage: 1 DOSAGE FORM, QD
     Route: 048
     Dates: start: 20250114, end: 20250513
  7. TAMSULOSIN HYDROCHLORIDE [Concomitant]
     Active Substance: TAMSULOSIN HYDROCHLORIDE
     Dosage: 1 DOSAGE FORM, QD
     Route: 048
     Dates: start: 20250114, end: 20250513
  8. TAMSULOSIN HYDROCHLORIDE [Concomitant]
     Active Substance: TAMSULOSIN HYDROCHLORIDE
     Dosage: 1 DOSAGE FORM, QD
     Dates: start: 20250114, end: 20250513
  9. SERTRALINE [Concomitant]
     Active Substance: SERTRALINE HYDROCHLORIDE
     Indication: Ill-defined disorder
     Dosage: 1 DOSAGE FORM, QD
     Dates: start: 20250217
  10. SERTRALINE [Concomitant]
     Active Substance: SERTRALINE HYDROCHLORIDE
     Dosage: 1 DOSAGE FORM, QD
     Route: 048
     Dates: start: 20250217
  11. SERTRALINE [Concomitant]
     Active Substance: SERTRALINE HYDROCHLORIDE
     Dosage: 1 DOSAGE FORM, QD
     Route: 048
     Dates: start: 20250217
  12. SERTRALINE [Concomitant]
     Active Substance: SERTRALINE HYDROCHLORIDE
     Dosage: 1 DOSAGE FORM, QD
     Dates: start: 20250217
  13. Hydramed [Concomitant]
     Indication: Ill-defined disorder
     Dosage: 1 DOSAGE FORM, Q6H (TO BOTH EYES)
     Dates: start: 20250508
  14. Hydramed [Concomitant]
     Dosage: 1 DOSAGE FORM, Q6H (TO BOTH EYES)
     Route: 047
     Dates: start: 20250508
  15. Hydramed [Concomitant]
     Dosage: 1 DOSAGE FORM, Q6H (TO BOTH EYES)
     Route: 047
     Dates: start: 20250508
  16. Hydramed [Concomitant]
     Dosage: 1 DOSAGE FORM, Q6H (TO BOTH EYES)
     Dates: start: 20250508

REACTIONS (2)
  - Headache [Not Recovered/Not Resolved]
  - Erythema [Not Recovered/Not Resolved]

NARRATIVE: CASE EVENT DATE: 20250513
